FAERS Safety Report 10137750 (Version 1)
Quarter: 2014Q2

REPORT INFORMATION
  Report Type: Spontaneous
  Country: US (occurrence: US)
  Receive Date: 20140429
  Receipt Date: 20140429
  Transmission Date: 20141212
  Serious: Yes (Hospitalization)
  Sender: FDA-Public Use
  Company Number: US-BAYER-2014-059770

PATIENT
  Age: 18 Year
  Sex: Female
  Weight: 52.15 kg

DRUGS (10)
  1. YAZ [Suspect]
     Dosage: UNK
     Dates: start: 20050531, end: 20080727
  2. YASMIN [Suspect]
  3. LEXAPRO [Concomitant]
     Dosage: 10 MG, UNK
  4. IRON SULFATE [Concomitant]
     Dosage: 325 MG, UNK
  5. SINGULAIR [Concomitant]
  6. TORADOL [Concomitant]
  7. XANAX [Concomitant]
  8. FLEXERIL [Concomitant]
  9. IBUPROFEN [Concomitant]
  10. LIDODERM [Concomitant]

REACTIONS (1)
  - Pulmonary embolism [Recovered/Resolved]
